FAERS Safety Report 9303309 (Version 1)
Quarter: 2013Q2

REPORT INFORMATION
  Report Type: Spontaneous
  Country: PT (occurrence: PT)
  Receive Date: 20130522
  Receipt Date: 20130522
  Transmission Date: 20140414
  Serious: Yes (Other)
  Sender: FDA-Public Use
  Company Number: PT-009507513-1305PRT008439

PATIENT
  Age: 5 Year
  Sex: Male
  Weight: 22 kg

DRUGS (5)
  1. NASOMET [Suspect]
     Indication: ASTHMA
     Dosage: 1 DF, QD
     Route: 055
     Dates: start: 2009
  2. MONTELUKAST SODIUM [Suspect]
     Indication: ASTHMA
     Dosage: 5 MG, QD
     Route: 048
     Dates: start: 201212, end: 20130311
  3. ZYRTEC [Concomitant]
     Indication: ASTHMA
     Dosage: 5 ML, QD
     Route: 048
     Dates: start: 2009
  4. SERETAIDE [Concomitant]
     Indication: ASTHMA
     Dosage: 2 DF, QD
     Route: 055
     Dates: start: 2009
  5. SINGULAIR [Concomitant]
     Indication: ASTHMA
     Dosage: 5 MG, QD
     Route: 048
     Dates: start: 2009, end: 201212

REACTIONS (5)
  - Hypoaesthesia [Recovered/Resolved]
  - Chest discomfort [Recovered/Resolved]
  - Hypoaesthesia [Recovered/Resolved]
  - Epistaxis [Recovered/Resolved]
  - Dizziness [Recovered/Resolved]
